FAERS Safety Report 13164555 (Version 1)
Quarter: 2017Q1

REPORT INFORMATION
  Report Type: Spontaneous
  Country: US (occurrence: US)
  Receive Date: 20170130
  Receipt Date: 20170130
  Transmission Date: 20170428
  Serious: No
  Sender: FDA-Public Use
  Company Number: US-ABBVIE-16P-163-1811128-00

PATIENT
  Sex: Male

DRUGS (1)
  1. LUPRON DEPOT [Suspect]
     Active Substance: LEUPROLIDE ACETATE
     Indication: PROSTATE CANCER
     Route: 050

REACTIONS (7)
  - Depression [Unknown]
  - Mental disorder [Unknown]
  - Negative thoughts [Unknown]
  - Impaired quality of life [Unknown]
  - Anxiety [Unknown]
  - Anger [Unknown]
  - Dementia [Unknown]
